FAERS Safety Report 8550363-0 (Version None)
Quarter: 2012Q3

REPORT INFORMATION
  Report Type: 
  Country: None (occurrence: None)
  Receive Date: 20120730
  Receipt Date: 20120718
  Transmission Date: 20120928
  Serious: Yes (Hospitalization, Disabling, Other)
  Sender: FDA-Public Use
  Company Number: US-009507513-1108USA02804

PATIENT

DRUGS (17)
  1. PREMPRO [Concomitant]
     Dates: start: 19930101
  2. FOSAMAX PLUS D [Suspect]
     Indication: OSTEOPENIA
     Dosage: 70 MG, UNK
     Route: 048
     Dates: start: 20080229, end: 20100301
  3. FOSAMAX PLUS D [Suspect]
     Indication: OSTEOPOROSIS
  4. RABIES IMMUNE GLOBULIN [Concomitant]
     Indication: ANIMAL BITE
  5. FOSAMAX [Suspect]
     Indication: OSTEOPOROSIS
     Dosage: 70 MG, UNK
     Route: 048
     Dates: start: 20010418, end: 20050101
  6. CALCIUM (UNSPECIFIED) [Concomitant]
     Dosage: 500-600
     Dates: start: 19900101
  7. LEXAPRO [Concomitant]
     Indication: DEPRESSION
     Dosage: 10 MG, QD
     Dates: start: 20040701, end: 20100601
  8. SYNTHROID [Concomitant]
     Indication: HYPOTHYROIDISM
     Dosage: 0.075-0.112
     Dates: start: 20010601, end: 20080601
  9. CHOLECALCIFEROL [Concomitant]
     Dosage: UNK UNK, QD
     Dates: start: 20090227
  10. VITAMIN D (UNSPECIFIED) [Concomitant]
     Dosage: 1000 MG, UNK
     Dates: start: 19900101
  11. BONIVA [Suspect]
     Indication: OSTEOPENIA
  12. MK-9278 [Concomitant]
     Dosage: UNK UNK, QD
     Dates: start: 19900101
  13. CITRACAL + D [Concomitant]
     Dates: start: 20090601
  14. BONIVA [Suspect]
     Indication: OSTEOPOROSIS
     Dosage: UNK UNK, QM
     Dates: start: 20050201, end: 20080101
  15. FOSAMAX [Suspect]
     Indication: OSTEOPENIA
     Dosage: 10 MG, QD
     Route: 048
     Dates: start: 19990729, end: 20010301
  16. CALCIUM (UNSPECIFIED) (+) VITAMIN D (UNSPECIFIED) [Concomitant]
     Dosage: 1200 MG, UNK
     Dates: start: 20000321
  17. HORMONES (UNSPECIFIED) [Concomitant]

REACTIONS (49)
  - FEMUR FRACTURE [None]
  - OSTEOARTHRITIS [None]
  - FOOT FRACTURE [None]
  - MENISCUS LESION [None]
  - SPONDYLOLISTHESIS [None]
  - AORTIC DISORDER [None]
  - ANIMAL BITE [None]
  - VASCULAR PSEUDOANEURYSM [None]
  - TRAUMATIC HAEMATOMA [None]
  - BUNION [None]
  - DRUG INEFFECTIVE [None]
  - WEIGHT INCREASED [None]
  - SCOLIOSIS [None]
  - SPONDYLOLYSIS [None]
  - INTERVERTEBRAL DISC DEGENERATION [None]
  - VITAMIN D DEFICIENCY [None]
  - RENAL IMPAIRMENT [None]
  - TENDON DISORDER [None]
  - NEURITIS [None]
  - MYOSITIS [None]
  - TINNITUS [None]
  - LOW TURNOVER OSTEOPATHY [None]
  - ANAEMIA POSTOPERATIVE [None]
  - COMPRESSION FRACTURE [None]
  - SKELETAL INJURY [None]
  - TEMPOROMANDIBULAR JOINT SYNDROME [None]
  - ADVERSE EVENT [None]
  - FOOT DEFORMITY [None]
  - SKIN DISCOLOURATION [None]
  - LIMB ASYMMETRY [None]
  - SCIATICA [None]
  - NORMOCHROMIC NORMOCYTIC ANAEMIA [None]
  - VASCULAR DISSECTION [None]
  - RASH [None]
  - DEEP VEIN THROMBOSIS [None]
  - FALL [None]
  - CALCIUM DEFICIENCY [None]
  - VULVA CYST [None]
  - ANXIETY [None]
  - INTERVERTEBRAL DISC PROTRUSION [None]
  - ARTERIAL DISORDER [None]
  - AORTIC CALCIFICATION [None]
  - PAIN IN EXTREMITY [None]
  - MUSCLE SPASMS [None]
  - HAEMATOMA [None]
  - INFLAMMATION [None]
  - OSTEOCHONDRITIS [None]
  - BALANCE DISORDER [None]
  - VARICOSE VEIN [None]
